FAERS Safety Report 9205290 (Version 1)
Quarter: 2013Q2

REPORT INFORMATION
  Report Type: Spontaneous
  Country: US (occurrence: US)
  Receive Date: 20130402
  Receipt Date: 20130402
  Transmission Date: 20140414
  Serious: Yes (Other)
  Sender: FDA-Public Use
  Company Number: US-PFIZER INC-2013100710

PATIENT
  Age: 76 Year
  Sex: Female
  Weight: 99.77 kg

DRUGS (3)
  1. DETROL LA [Suspect]
     Indication: ENURESIS
     Dosage: UNK, ONE DF DAILY AT NIGHT
  2. DETROL LA [Suspect]
     Dosage: 1 DF, 1X/DAY
  3. ATENOLOL [Suspect]
     Indication: HYPERTENSION
     Dosage: UNK,1X/DAY

REACTIONS (4)
  - Weight decreased [Unknown]
  - Drug ineffective [Unknown]
  - Abdominal pain [Unknown]
  - Weight increased [Recovered/Resolved]
